FAERS Safety Report 15666282 (Version 4)
Quarter: 2019Q1

REPORT INFORMATION
  Report Type: Spontaneous
  Country: US (occurrence: US)
  Receive Date: 20181128
  Receipt Date: 20190301
  Transmission Date: 20190417
  Serious: Yes (Other)
  Sender: FDA-Public Use
  Company Number: US-PFIZER INC-2018488795

PATIENT
  Age: 81 Year
  Sex: Male

DRUGS (1)
  1. XELJANZ [Suspect]
     Active Substance: TOFACITINIB CITRATE
     Dosage: 5 MG, 1X/DAY
     Dates: start: 20180525

REACTIONS (10)
  - Pain [Not Recovered/Not Resolved]
  - Fatigue [Unknown]
  - Back pain [Unknown]
  - Product use issue [Unknown]
  - Neuropathy peripheral [Unknown]
  - Middle insomnia [Unknown]
  - Hypoacusis [Unknown]
  - Dizziness [Unknown]
  - Vertigo [Unknown]
  - Pain in extremity [Unknown]
